FAERS Safety Report 4534278-0 (Version None)
Quarter: 2004Q4

REPORT INFORMATION
  Report Type: 
  Country: None (occurrence: None)
  Receive Date: 20041214
  Receipt Date: 20040825
  Transmission Date: 20050328
  Serious: No
  Sender: FDA-Public Use
  Company Number: 2004231552US

PATIENT
  Age: 52 Year
  Sex: Female

DRUGS (3)
  1. BEXTRA [Suspect]
     Indication: TENDONITIS
     Dosage: 20 MG, QD, ORAL
     Route: 048
  2. ZANAFLEX [Concomitant]
  3. MOTRIN [Concomitant]

REACTIONS (1)
  - TYPE III IMMUNE COMPLEX MEDIATED REACTION [None]
